FAERS Safety Report 7525151-4 (Version None)
Quarter: 2011Q2

REPORT INFORMATION
  Report Type: 
  Country: None (occurrence: None)
  Receive Date: 20110606
  Receipt Date: 20110531
  Transmission Date: 20111010
  Serious: Yes (Hospitalization)
  Sender: FDA-Public Use
  Company Number: ES-SANOFI-AVENTIS-2011SA034649

PATIENT
  Age: 59 Year
  Sex: Male

DRUGS (11)
  1. FUROSEMIDE [Suspect]
     Route: 065
     Dates: end: 20110401
  2. NITROGLYCERIN [Suspect]
     Route: 065
     Dates: end: 20110401
  3. PLATELETS [Concomitant]
  4. METFFORMIN HYDROCHLORIDE [Suspect]
     Route: 065
  5. BETA BLOCKING AGENTS [Concomitant]
  6. ASPIRIN [Concomitant]
     Dates: start: 20110208
  7. DIURETICS [Concomitant]
  8. BLINDED THERAPY [Suspect]
     Route: 065
     Dates: start: 20110208
  9. BISOPROLOL FUMARATE [Suspect]
     Route: 065
     Dates: end: 20110401
  10. ANGIOTENSIN II ANTAGONISTS [Concomitant]
  11. HMG COA REDUCTASE INHIBITORS [Concomitant]

REACTIONS (4)
  - DIZZINESS [None]
  - SYNCOPE [None]
  - ASTHENIA [None]
  - LOSS OF CONSCIOUSNESS [None]
